FAERS Safety Report 17934475 (Version 1)
Quarter: 2020Q2

REPORT INFORMATION
  Report Type: Spontaneous
  Country: US (occurrence: US)
  Receive Date: 20200623
  Receipt Date: 20200623
  Transmission Date: 20200714
  Serious: Yes (Death)
  Sender: FDA-Public Use
  Company Number: None

PATIENT
  Age: 84 Year
  Sex: Male
  Weight: 68 kg

DRUGS (22)
  1. AMIODARONE 450 MG IV INFUSION [Concomitant]
     Dates: start: 20200616, end: 20200620
  2. ASPIRIN 81 MG PO ONCE DAILY [Concomitant]
     Dates: start: 20200613, end: 20200622
  3. B-12 1000 MCG SQ ONCE DAILY [Concomitant]
     Dates: start: 20200616, end: 20200619
  4. AZITHROMYCIN 250 MG PO ONCE DAILY [Concomitant]
     Dates: start: 20200613, end: 20200615
  5. CONVALESCENT PLASMA [Concomitant]
     Active Substance: HUMAN PLASMA
     Dates: start: 20200617, end: 20200617
  6. METHYPREDNISOLONE 40 MG IV Q12HR [Concomitant]
     Dates: start: 20200617, end: 20200622
  7. ENOXAPARIN 70 MG SQ ONCE DAILY [Concomitant]
     Dates: start: 20200621, end: 20200621
  8. ASCORBIC ACID 1500 MG IV Q6HR [Concomitant]
     Dates: start: 20200617, end: 20200618
  9. ATORVASTATIN 80 MG PO ONCE DAILY [Concomitant]
     Dates: start: 20200613, end: 20200620
  10. DILTIAZEM 30 MG PO Q8HR [Concomitant]
     Dates: start: 20200620, end: 20200623
  11. REMDESIVIR. [Suspect]
     Active Substance: REMDESIVIR
     Indication: COVID-19 PNEUMONIA
     Route: 042
     Dates: start: 20200615, end: 20200619
  12. CEFTRIAXONE 1 GM IV ONCE DAILY [Concomitant]
     Dates: start: 20200612, end: 20200616
  13. ASCORBIC ACID 1500 PO ONCE DAILY [Concomitant]
     Dates: end: 20200622
  14. AMIODARONE 200 MG PO ONCE DAILY [Concomitant]
     Dates: start: 20200621, end: 20200622
  15. AZITHROMYCIN 500 MG IV X 1 [Concomitant]
     Dates: start: 20200612, end: 20200612
  16. ZINC SULFATE 220 MG PO ONCE DAILY [Concomitant]
     Dates: start: 20200617, end: 20200622
  17. VASOPRESSIN IV 20 UNITS/ML [Concomitant]
     Dates: start: 20200621, end: 20200623
  18. HYDROXYCHLOROQUINE 400 MG PO [Concomitant]
     Dates: start: 20200613, end: 20200616
  19. THIAMINE 100 MG PO BID [Concomitant]
     Dates: start: 20200617, end: 20200622
  20. DILTIAZEM 100 MG IV INFUSION [Concomitant]
     Dates: start: 20200616, end: 20200620
  21. ENOXAPARIN 70 MG SQ Q12HR [Concomitant]
     Dates: start: 20200613, end: 20200620
  22. CEFEPIME 1 GM IV [Concomitant]
     Dates: start: 20200617, end: 20200621

REACTIONS (4)
  - Bradycardia [None]
  - Pulseless electrical activity [None]
  - Haemodynamic instability [None]
  - Cardio-respiratory arrest [None]

NARRATIVE: CASE EVENT DATE: 20200623
